FAERS Safety Report 7217024-1 (Version None)
Quarter: 2011Q1

REPORT INFORMATION
  Report Type: 
  Country: None (occurrence: None)
  Receive Date: 20110110
  Receipt Date: 20101230
  Transmission Date: 20110831
  Serious: Yes (Other)
  Sender: FDA-Public Use
  Company Number: US-JNJFOC-20101109045

PATIENT
  Age: 56 Year
  Sex: Female

DRUGS (9)
  1. REMICADE [Suspect]
     Indication: PRODUCT USED FOR UNKNOWN INDICATION
     Route: 042
  2. METHOTREXATE [Concomitant]
  3. ARAVA [Concomitant]
  4. PREDNISONE [Concomitant]
  5. LIPITOR [Concomitant]
  6. ACTONEL [Concomitant]
  7. BENADRYL [Concomitant]
     Indication: PREMEDICATION
  8. HYDROCORTISONE [Concomitant]
  9. FOSAMAX [Concomitant]

REACTIONS (7)
  - ASTHENIA [None]
  - BLOOD PRESSURE DECREASED [None]
  - ABASIA [None]
  - MYALGIA [None]
  - LOSS OF CONSCIOUSNESS [None]
  - VOMITING [None]
  - DIZZINESS [None]
